FAERS Safety Report 8995322 (Version 1)
Quarter: 2013Q1

REPORT INFORMATION
  Report Type: Spontaneous
  Country: US (occurrence: US)
  Receive Date: 20130103
  Receipt Date: 20130103
  Transmission Date: 20140127
  Serious: Yes (Other)
  Sender: FDA-Public Use
  Company Number: US-ROCHE-1176216

PATIENT
  Age: 68 Year
  Sex: Male

DRUGS (3)
  1. BEVACIZUMAB [Suspect]
     Indication: RECTAL CANCER METASTATIC
     Route: 065
  2. FLUOROURACIL [Concomitant]
     Route: 065
  3. LEUCOVORIN [Concomitant]
     Route: 065

REACTIONS (3)
  - Haematuria [Unknown]
  - Pneumaturia [Unknown]
  - Faecaluria [Unknown]
